FAERS Safety Report 8234541-6 (Version None)
Quarter: 2012Q1

REPORT INFORMATION
  Report Type: 
  Country: None (occurrence: None)
  Receive Date: 20120326
  Receipt Date: 20120312
  Transmission Date: 20120608
  Serious: Yes (Other)
  Sender: FDA-Public Use
  Company Number: DE-ROCHE-1044659

PATIENT
  Age: 27 Month

DRUGS (1)
  1. TAMIFLU [Suspect]
     Indication: INFLUENZA
     Dates: start: 20120224

REACTIONS (1)
  - MENINGITIS [None]
